FAERS Safety Report 23810614 (Version 1)
Quarter: 2024Q2

REPORT INFORMATION
  Report Type: Spontaneous
  Country: US (occurrence: US)
  Receive Date: 20240502
  Receipt Date: 20240502
  Transmission Date: 20240716
  Serious: No
  Sender: FDA-Public Use
  Company Number: US-INSUD PHARMA-2404US03463

PATIENT

DRUGS (1)
  1. PROGESTERONE [Suspect]
     Active Substance: PROGESTERONE
     Indication: Hormone replacement therapy
     Dosage: UNKNOWN
     Route: 048

REACTIONS (5)
  - Sleep disorder [Not Recovered/Not Resolved]
  - Malaise [Not Recovered/Not Resolved]
  - Poor quality product administered [Not Recovered/Not Resolved]
  - Product odour abnormal [Not Recovered/Not Resolved]
  - Product use in unapproved indication [Not Recovered/Not Resolved]
